FAERS Safety Report 12897075 (Version 1)
Quarter: 2016Q4

REPORT INFORMATION
  Report Type: Spontaneous
  Country: US (occurrence: US)
  Receive Date: 20161031
  Receipt Date: 20161031
  Transmission Date: 20170207
  Serious: Yes (Hospitalization)
  Sender: FDA-Public Use
  Company Number: US-MYLANLABS-2016M1046605

PATIENT

DRUGS (13)
  1. WARFARIN [Interacting]
     Active Substance: WARFARIN
     Indication: DEEP VEIN THROMBOSIS
     Dosage: 2 MG DAILY (14 MG WEEKLY)
     Route: 048
  2. WARFARIN [Interacting]
     Active Substance: WARFARIN
     Dosage: 4 MG DAILY (28 MG WEEKLY)
     Route: 048
  3. COLECALCIFEROL [Concomitant]
     Active Substance: CHOLECALCIFEROL
     Indication: PRODUCT USED FOR UNKNOWN INDICATION
     Dosage: 400 IU ONCE DAILY
     Route: 065
  4. GEMCITABINE [Suspect]
     Active Substance: GEMCITABINE\GEMCITABINE HYDROCHLORIDE
     Indication: BLADDER TRANSITIONAL CELL CARCINOMA
     Dosage: 2 G INFUSION THROUGH A STRAIGHT CATHETER
     Route: 043
  5. WARFARIN [Interacting]
     Active Substance: WARFARIN
     Dosage: 4 MG DAILY (28 MG WEEKLY)
     Route: 048
  6. WARFARIN [Interacting]
     Active Substance: WARFARIN
     Dosage: 2MG BOOST FOR 2 DAYS; THEN CONTINUED 25 MG WEEKLY
     Route: 048
  7. WARFARIN [Interacting]
     Active Substance: WARFARIN
     Dosage: 1MG BOOST FOR 1 DAY; THEN INCREASED TO 4MG DAILY (28MG WEEKLY)
     Route: 048
  8. TAMSULOSIN [Concomitant]
     Active Substance: TAMSULOSIN
     Indication: PRODUCT USED FOR UNKNOWN INDICATION
     Route: 048
  9. TROSPIUM CHLORIDE. [Concomitant]
     Active Substance: TROSPIUM CHLORIDE
     Indication: PRODUCT USED FOR UNKNOWN INDICATION
     Route: 048
  10. CALCIUM CARBONATE. [Concomitant]
     Active Substance: CALCIUM CARBONATE
     Indication: PRODUCT USED FOR UNKNOWN INDICATION
     Route: 065
  11. CARBOPLATIN. [Concomitant]
     Active Substance: CARBOPLATIN
     Indication: BLADDER TRANSITIONAL CELL CARCINOMA
     Route: 065
  12. WARFARIN [Interacting]
     Active Substance: WARFARIN
     Dosage: 3 MG DAILY (21 MG WEEKLY)
     Route: 048
  13. WARFARIN [Interacting]
     Active Substance: WARFARIN
     Dosage: 25 MG WEEKLY
     Route: 048

REACTIONS (3)
  - Drug interaction [Recovered/Resolved]
  - International normalised ratio increased [Recovered/Resolved]
  - Muscle haemorrhage [Recovered/Resolved]
